FAERS Safety Report 4434633-3 (Version None)
Quarter: 2004Q3

REPORT INFORMATION
  Report Type: 
  Country: None (occurrence: None)
  Receive Date: 20040826
  Receipt Date: 20040823
  Transmission Date: 20050211
  Serious: Yes (Death)
  Sender: FDA-Public Use
  Company Number: 04-07-1007

PATIENT
  Age: 46 Year
  Sex: Male

DRUGS (4)
  1. CLOZAPINE [Suspect]
     Indication: PSYCHOTIC DISORDER
     Dosage: 700MG QD ORAL
     Route: 048
     Dates: start: 19991201, end: 20040701
  2. DEPAKOTE [Concomitant]
  3. LEXAPRO [Concomitant]
  4. ATIVAN [Concomitant]

REACTIONS (4)
  - CARDIAC ARREST [None]
  - CARDIAC DISORDER [None]
  - MYOCARDIAL INFARCTION [None]
  - SUDDEN DEATH [None]
